FAERS Safety Report 9238983 (Version 2)
Quarter: 2013Q2

REPORT INFORMATION
  Report Type: Spontaneous
  Country: JP (occurrence: JP)
  Receive Date: 20130418
  Receipt Date: 20130520
  Transmission Date: 20140414
  Serious: Yes (Other)
  Sender: FDA-Public Use
  Company Number: JP-ROCHE-1214289

PATIENT
  Age: 88 Year
  Sex: Male

DRUGS (13)
  1. GRTPA [Suspect]
     Indication: CEREBRAL INFARCTION
     Route: 051
     Dates: start: 20121228
  2. RADICUT [Suspect]
     Indication: CEREBRAL INFARCTION
     Route: 041
     Dates: start: 20121228, end: 20130103
  3. ALEVIATIN [Suspect]
     Indication: CONVULSION
     Route: 041
     Dates: start: 20121228, end: 20121228
  4. ALEVIATIN [Suspect]
     Route: 041
     Dates: start: 20121229, end: 20121230
  5. RASENAZOLIN [Suspect]
     Indication: PNEUMONIA
     Route: 041
     Dates: start: 20121228, end: 20130102
  6. HEPARIN SODIUM [Concomitant]
     Route: 041
     Dates: start: 20121228, end: 20121228
  7. GASTER [Concomitant]
     Route: 042
     Dates: start: 20121228, end: 20121228
  8. PLAVIX [Concomitant]
     Route: 048
     Dates: start: 20121228, end: 20121228
  9. PLAVIX [Concomitant]
     Route: 048
     Dates: start: 20121229, end: 20130111
  10. OLMETEC [Concomitant]
     Route: 048
     Dates: start: 20121229
  11. AMLODIN [Concomitant]
     Route: 048
     Dates: start: 20121230
  12. CRESTOR [Concomitant]
     Route: 048
     Dates: start: 20121229, end: 20130121
  13. TAKEPRON [Concomitant]
     Route: 048
     Dates: start: 20121229, end: 20130121

REACTIONS (1)
  - Liver disorder [Recovering/Resolving]
